FAERS Safety Report 23480083 (Version 1)
Quarter: 2024Q1

REPORT INFORMATION
  Report Type: Spontaneous
  Country: GB (occurrence: GB)
  Receive Date: 20240205
  Receipt Date: 20240205
  Transmission Date: 20240410
  Serious: Yes (Other)
  Sender: FDA-Public Use
  Company Number: None

PATIENT
  Age: 76 Year
  Sex: Female
  Weight: 55 kg

DRUGS (12)
  1. EZETIMIBE [Suspect]
     Active Substance: EZETIMIBE
     Indication: Ill-defined disorder
     Dosage: UNK
     Route: 065
     Dates: start: 20240118
  2. ASPIRIN [Concomitant]
     Active Substance: ASPIRIN
     Indication: Ill-defined disorder
     Dosage: UNK, QD (TAKE ONCE DAILY)
     Route: 065
     Dates: start: 20230629
  3. BISOPROLOL [Concomitant]
     Active Substance: BISOPROLOL\BISOPROLOL FUMARATE
     Indication: Ill-defined disorder
     Dosage: UNK, QD (TAKE ONE DAILY (SANDOZ BRAND))
     Route: 065
     Dates: start: 20230629
  4. EZETIMIBE [Concomitant]
     Active Substance: EZETIMIBE
     Indication: Ill-defined disorder
     Dosage: UNK, QD (TAKE ONE DAILY)
     Route: 065
     Dates: start: 20230905
  5. FLUOROURACIL [Concomitant]
     Active Substance: FLUOROURACIL
     Indication: Ill-defined disorder
     Dosage: UNK, BID (APPLY THINLY TWICE DAILY FOR 3 WEEKS AS PER A..)
     Route: 065
     Dates: start: 20240111
  6. LANSOPRAZOLE [Concomitant]
     Active Substance: LANSOPRAZOLE
     Indication: Ill-defined disorder
     Dosage: UNK, QD (ONE TO BE TAKEN ONCE A DAY)
     Route: 065
     Dates: start: 20230629
  7. PRALUENT [Concomitant]
     Active Substance: ALIROCUMAB
     Indication: Ill-defined disorder
     Dosage: 150 MILLIGRAM, ONCE IN 2 WEEKS
     Route: 058
     Dates: start: 20230728
  8. RAMIPRIL [Concomitant]
     Active Substance: RAMIPRIL
     Indication: Ill-defined disorder
     Dosage: UNK, QD (1 DAILY)
     Route: 065
     Dates: start: 20230629
  9. ALBUTEROL [Concomitant]
     Active Substance: ALBUTEROL
     Indication: Ill-defined disorder
     Dosage: UNK, PRN (INHALE 2 DOSES AS NEEDED. IF NEED TO USE TH...)
     Dates: start: 20230629
  10. SERETIDE [Concomitant]
     Active Substance: FLUTICASONE PROPIONATE\SALMETEROL XINAFOATE
     Indication: Ill-defined disorder
     Dosage: UNK, BID (INHALE 1 DOSE TWICE DAILY)
     Dates: start: 20230629
  11. SPIRONOLACTONE [Concomitant]
     Active Substance: SPIRONOLACTONE
     Indication: Ill-defined disorder
     Dosage: UNK, QD (ONE TO BE TAKEN DAILY)
     Route: 065
     Dates: start: 20230629
  12. Theical-D3 [Concomitant]
     Indication: Ill-defined disorder
     Dosage: UNK, QD (TAKE ONE ONCE DAILY)
     Route: 065
     Dates: start: 20230629

REACTIONS (1)
  - Lip swelling [Recovering/Resolving]

NARRATIVE: CASE EVENT DATE: 20240118
